FAERS Safety Report 7421133-1 (Version None)
Quarter: 2011Q2

REPORT INFORMATION
  Report Type: 
  Country: None (occurrence: None)
  Receive Date: 20110408
  Receipt Date: 20110401
  Transmission Date: 20111010
  Serious: Yes (Death)
  Sender: FDA-Public Use
  Company Number: 2011040500

PATIENT

DRUGS (1)
  1. FRAGMIN [Suspect]

REACTIONS (2)
  - RECTAL CANCER [None]
  - CONDITION AGGRAVATED [None]
